FAERS Safety Report 21594963 (Version 2)
Quarter: 2022Q4

REPORT INFORMATION
  Report Type: Spontaneous
  Country: US (occurrence: US)
  Receive Date: 20221115
  Receipt Date: 20221221
  Transmission Date: 20230113
  Serious: No
  Sender: FDA-Public Use
  Company Number: US-PFIZER INC-202201287635

PATIENT
  Age: 14 Year
  Sex: Female
  Weight: 53.52 kg

DRUGS (3)
  1. GENOTROPIN [Suspect]
     Active Substance: SOMATROPIN
     Indication: Growth hormone deficiency
     Dosage: 2.4 MG (BY INJECTION)
  2. LEVOTHYROXINE [Concomitant]
     Active Substance: LEVOTHYROXINE
     Indication: Thyroid disorder
     Dosage: 75 UG
  3. DESMOPRESSIN [Concomitant]
     Active Substance: DESMOPRESSIN
     Indication: Diabetes insipidus
     Dosage: 0.5 MG (0.2MG AT 8AM AND 0.1MG AT 2 IN AFTERNOON AND 0.2MG AT NIGHT)

REACTIONS (2)
  - Device mechanical issue [Not Recovered/Not Resolved]
  - Drug dose omission by device [Not Recovered/Not Resolved]
